FAERS Safety Report 16353844 (Version 2)
Quarter: 2019Q3

REPORT INFORMATION
  Report Type: Spontaneous
  Country: US (occurrence: US)
  Receive Date: 20190524
  Receipt Date: 20190830
  Transmission Date: 20191004
  Serious: Yes (Hospitalization, Other)
  Sender: FDA-Public Use
  Company Number: US-009507513-1905USA009366

PATIENT
  Age: 64 Year
  Sex: Male

DRUGS (6)
  1. TAMSULON [Concomitant]
     Dosage: UNK
  2. LEVOTHYROXINE SODIUM. [Concomitant]
     Active Substance: LEVOTHYROXINE SODIUM
     Dosage: UNK
  3. FINASTERIDE. [Concomitant]
     Active Substance: FINASTERIDE
     Dosage: UNK
  4. KEYTRUDA [Suspect]
     Active Substance: PEMBROLIZUMAB
     Indication: NON-SMALL CELL LUNG CANCER
     Dosage: 2 VIALS EVERY 21 DAYS
     Route: 042
     Dates: start: 201802
  5. VITAMIN B (UNSPECIFIED) [Concomitant]
     Active Substance: VITAMIN B
     Dosage: UNK
  6. VITAMIN D (UNSPECIFIED) [Concomitant]
     Active Substance: VITAMIN D NOS
     Dosage: UNK

REACTIONS (8)
  - Renal aneurysm [Unknown]
  - Aortic aneurysm [Unknown]
  - Emphysema [Unknown]
  - Brain neoplasm [Recovered/Resolved]
  - Pneumothorax [Recovering/Resolving]
  - Pneumothorax [Recovered/Resolved]
  - Procedural complication [Unknown]
  - Peripheral artery aneurysm [Unknown]

NARRATIVE: CASE EVENT DATE: 2018
